FAERS Safety Report 20309299 (Version 1)
Quarter: 2022Q1

REPORT INFORMATION
  Report Type: Spontaneous
  Country: None (occurrence: KR)
  Receive Date: 20220107
  Receipt Date: 20220107
  Transmission Date: 20220423
  Serious: Yes (Other)
  Sender: FDA-Public Use
  Company Number: KR-Acacia Pharma Limited-2123714

PATIENT
  Age: 66 Year
  Sex: Male

DRUGS (6)
  1. BYFAVO [Suspect]
     Active Substance: REMIMAZOLAM BESYLATE
     Indication: Induction of anaesthesia
     Route: 042
     Dates: start: 20211222, end: 20211222
  2. REMIFENTANIL [Suspect]
     Active Substance: REMIFENTANIL
     Route: 042
     Dates: start: 20211222, end: 20211222
  3. ROCURONIUM [Suspect]
     Active Substance: ROCURONIUM BROMIDE
     Route: 042
     Dates: start: 20211222
  4. EPHEDRINE [Concomitant]
     Active Substance: EPHEDRINE
     Route: 065
     Dates: start: 20211222
  5. PHENYLEPHRINE [Concomitant]
     Active Substance: PHENYLEPHRINE HYDROCHLORIDE
     Route: 065
     Dates: start: 20211222
  6. EPINEPHRINE [Concomitant]
     Active Substance: EPINEPHRINE
     Route: 040
     Dates: start: 20211222

REACTIONS (3)
  - Hypotension [Recovered/Resolved]
  - Electrocardiogram ST segment elevation [Recovered/Resolved]
  - Electrocardiogram QRS complex abnormal [Recovered/Resolved]

NARRATIVE: CASE EVENT DATE: 20211222
